FAERS Safety Report 23954123 (Version 2)
Quarter: 2024Q3

REPORT INFORMATION
  Report Type: Spontaneous
  Country: DK (occurrence: DK)
  Receive Date: 20240609
  Receipt Date: 20240809
  Transmission Date: 20241016
  Serious: Yes (Hospitalization, Other)
  Sender: NOVO NORDISK
  Company Number: DK-NOVOPROD-1230772

PATIENT
  Age: 65 Year
  Sex: Female
  Weight: 90.7 kg

DRUGS (31)
  1. WEGOVY [Suspect]
     Active Substance: SEMAGLUTIDE
     Indication: Product used for unknown indication
     Dosage: UNK
     Dates: start: 202402
  2. WEGOVY [Suspect]
     Active Substance: SEMAGLUTIDE
     Indication: Product used for unknown indication
     Dosage: 0.5 MG, QD
  3. PANTOPRAZOLE [Concomitant]
     Active Substance: PANTOPRAZOLE
     Indication: Gastric ulcer
     Dosage: UNK (1 TABLET FOR BREAKFAST)
     Dates: start: 20221203
  4. RIFAXIMIN [Concomitant]
     Active Substance: RIFAXIMIN
     Indication: Hepatic encephalopathy
     Dosage: UNK(1 TABLET MORNING AND EVENING)
     Dates: start: 20240510
  5. MINERALS\VITAMINS [Concomitant]
     Active Substance: MINERALS\VITAMINS
     Indication: Vitamin supplementation
     Dosage: UNK(1 TABLET MORNING)
     Dates: start: 20231116
  6. ALFACALCIDOL [Concomitant]
     Active Substance: ALFACALCIDOL
     Dosage: 1 ?G
     Dates: start: 20240708, end: 20240722
  7. ALFACALCIDOL [Concomitant]
     Active Substance: ALFACALCIDOL
     Indication: Hypercalcaemia
     Dosage: 0.5 ?G
     Dates: start: 20150218
  8. UNIKALK FORTE [Concomitant]
     Indication: Mineral supplementation
     Dosage: UNK
     Dates: start: 20210602
  9. UNIKALK FORTE [Concomitant]
     Indication: Vitamin supplementation
     Dosage: 400 MG + 19 MICROGRAMS(2 TABLETS MORNING AND 1 TABLET NOON AND 2 TABLETS EVENING AND 1 TABLET NIGHT,
     Dates: start: 20240722
  10. POTASSIUM CHLORIDE [Concomitant]
     Active Substance: POTASSIUM CHLORIDE
     Indication: Prophylaxis
     Dosage: UNK(1 EXTENDED-RELEASE TABLET MORNING)
     Dates: start: 20240504
  11. MAGNESIUM [Concomitant]
     Active Substance: MAGNESIUM
     Indication: Blood magnesium decreased
  12. APIXABAN [Concomitant]
     Active Substance: APIXABAN
     Indication: Thrombosis
     Dosage: UNK(1 TABLET MORNING AND EVENING)
     Dates: start: 20150130
  13. FERROUS FUMARATE [Concomitant]
     Active Substance: FERROUS FUMARATE
     Indication: Prophylaxis
     Dosage: UNK(1 TABLET MORNING AND EVENING)
     Dates: start: 20240415
  14. FUROSEMIDE [Concomitant]
     Active Substance: FUROSEMIDE
     Indication: Prophylaxis
     Dosage: UNK(1 TABLET MORNING)
     Dates: start: 20240711
  15. SIMVASTATIN [Concomitant]
     Active Substance: SIMVASTATIN
     Indication: Blood cholesterol increased
     Dosage: UNK(1 TABLET NIGHT)
     Dates: start: 20160819
  16. LEVOTHYROXINE SODIUM [Concomitant]
     Active Substance: LEVOTHYROXINE SODIUM
     Indication: Hypothyroidism
     Dosage: UNK(1 TABLET MORNING)
     Dates: start: 20150106
  17. LAMOTRIGINE [Concomitant]
     Active Substance: LAMOTRIGINE
     Dosage: UNK(1 TABLET EVENING)
     Dates: start: 20210316
  18. LAMOTRIGINE [Concomitant]
     Active Substance: LAMOTRIGINE
     Indication: Mood swings
     Dosage: UNK(1 TABLET MORNING AND EVENING)
     Dates: start: 20150511
  19. ALPRAZOLAM [Concomitant]
     Active Substance: ALPRAZOLAM
     Indication: Anxiety
     Dosage: UNK(1 TABLET NIGHT)
     Dates: start: 20240528
  20. CITALOPRAM [Concomitant]
     Active Substance: CITALOPRAM\CITALOPRAM HYDROBROMIDE
     Indication: Depression
     Dosage: UNK(1 TABLET MORNING)
     Dates: start: 20230809
  21. CARBOHYDRATES\FATTY ACIDS\MINERALS\PROTEIN\VITAMINS [Concomitant]
     Active Substance: CARBOHYDRATES\FATTY ACIDS\MINERALS\PROTEIN\VITAMINS
     Indication: Nutritional supplementation
     Dosage: UNK(1 UNIT MORNING, NOON, AND EVENING)
     Dates: start: 20240516
  22. ZINC [Concomitant]
     Active Substance: ZINC
     Indication: Mineral supplementation
     Dosage: UNK(1 TABLET NIGHT)
     Dates: start: 20240423
  23. ONDANSETRON [Concomitant]
     Active Substance: ONDANSETRON
     Indication: Nausea
     Dosage: UNK(1 TABLET AS NEEDED, UP TO 3 TIMES DAILY)
     Dates: start: 20240604
  24. BISACODYL [Concomitant]
     Active Substance: BISACODYL
     Indication: Constipation
     Dosage: UNK(1 TABLET AS NEEDED, UP TO 2 TIMES DAILY)
     Dates: start: 20240508
  25. ACETAMINOPHEN [Concomitant]
     Active Substance: ACETAMINOPHEN
     Indication: Pain
     Dosage: UNK
     Dates: start: 20231115
  26. ACETAMINOPHEN [Concomitant]
     Active Substance: ACETAMINOPHEN
     Dosage: UNK(2 TABLETS NIGHT. 2 TABLETS AS NEEDED, UP TO 2 TIMES DAILY)
     Dates: start: 20240703
  27. MELATONIN [Concomitant]
     Active Substance: MELATONIN
     Indication: Insomnia
     Dosage: UNK(1 TABLET AS NEEDED, UP TO 1 TIME DAILY)
     Dates: start: 20240318
  28. CALCIUM [Concomitant]
     Active Substance: CALCIUM
     Indication: Mineral supplementation
     Dosage: UNK(1 TABLET MORNING AND EVENING)
     Dates: start: 20240715, end: 20240722
  29. SPIRONOLACTONE [Concomitant]
     Active Substance: SPIRONOLACTONE
     Indication: Prophylaxis
     Dosage: UNK
  30. IRON [Concomitant]
     Active Substance: IRON
     Indication: Hepatic cirrhosis
     Dosage: UNK
  31. UNIKALK [Concomitant]
     Indication: Hypoparathyroidism
     Dosage: UNK

REACTIONS (15)
  - Decreased appetite [Unknown]
  - Coma hepatic [Unknown]
  - Hepatic steatosis [Unknown]
  - Anaemia [Unknown]
  - Parkinson^s disease [Unknown]
  - Central nervous system infection [Recovered/Resolved]
  - Fall [Unknown]
  - Blood calcium abnormal [Unknown]
  - Clostridium bacteraemia [Unknown]
  - Epistaxis [Unknown]
  - Pyrexia [Unknown]
  - Orthostatic hypotension [Unknown]
  - Nausea [Unknown]
  - Vision blurred [Unknown]
  - Inappropriate schedule of product administration [Unknown]

NARRATIVE: CASE EVENT DATE: 20240414
